FAERS Safety Report 15094234 (Version 1)
Quarter: 2018Q2

REPORT INFORMATION
  Report Type: Spontaneous
  Country: FR (occurrence: FR)
  Receive Date: 20180630
  Receipt Date: 20180630
  Transmission Date: 20180711
  Serious: Yes (Hospitalization)
  Sender: FDA-Public Use
  Company Number: FR-TEVA-2018-FR-916446

PATIENT
  Age: 27 Year
  Sex: Female

DRUGS (8)
  1. PANTOPRAZOLE [Suspect]
     Active Substance: PANTOPRAZOLE
     Indication: HYPEREMESIS GRAVIDARUM
     Dosage: 40 MILLIGRAM DAILY;
     Route: 042
     Dates: start: 20180320, end: 20180327
  2. BEVITINE 100 MG/2 ML, SOLUTION INJECTABLE EN AMPOULE [Concomitant]
     Dosage: 1 DOSAGE FORMS DAILY;
     Route: 042
     Dates: start: 20180320, end: 20180327
  3. PROPRANOLOL [Concomitant]
     Active Substance: PROPRANOLOL HYDROCHLORIDE
     Dosage: 40 MILLIGRAM DAILY;
     Route: 048
     Dates: start: 20180322
  4. LOVENOX [Concomitant]
     Active Substance: ENOXAPARIN SODIUM
     Dosage: 1 DOSAGE FORMS DAILY;
     Route: 058
     Dates: start: 20180324
  5. PRIMPERAN [Concomitant]
     Active Substance: METOCLOPRAMIDE HYDROCHLORIDE
     Dosage: 3 DOSAGE FORMS DAILY;
     Route: 048
     Dates: start: 20180320, end: 20180327
  6. HYDROCORTISONE. [Suspect]
     Active Substance: HYDROCORTISONE
     Indication: HYPEREMESIS GRAVIDARUM
     Dosage: 300 MILLIGRAM DAILY;
     Route: 042
     Dates: start: 20180320, end: 20180326
  7. GLUCIDION [Concomitant]
     Active Substance: GLUCOSE, LIQUID\POTASSIUM CHLORIDE\SODIUM CHLORIDE
     Dosage: 3 DOSAGE FORMS DAILY;
     Route: 042
     Dates: start: 20180320, end: 20180326
  8. BECILAN [Concomitant]
     Active Substance: PYRIDOXINE
     Dosage: 1 DOSAGE FORMS DAILY;
     Route: 042
     Dates: start: 20180320, end: 20180327

REACTIONS (1)
  - Hypokalaemia [Recovered/Resolved]

NARRATIVE: CASE EVENT DATE: 20180326
